FAERS Safety Report 17646237 (Version 2)
Quarter: 2020Q3

REPORT INFORMATION
  Report Type: Spontaneous
  Country: US (occurrence: US)
  Receive Date: 20200408
  Receipt Date: 20200810
  Transmission Date: 20201102
  Serious: Yes (Death, Other)
  Sender: FDA-Public Use
  Company Number: US-009507513-2004USA000952

PATIENT
  Age: 53 Year
  Sex: Male

DRUGS (1)
  1. KEYTRUDA [Suspect]
     Active Substance: PEMBROLIZUMAB
     Indication: MESOTHELIOMA
     Dosage: UNK
     Route: 042
     Dates: start: 20200303

REACTIONS (6)
  - Diplopia [Unknown]
  - Alanine aminotransferase increased [Unknown]
  - Endotracheal intubation [Unknown]
  - Aspartate aminotransferase increased [Unknown]
  - Product use in unapproved indication [Unknown]
  - Heart rate decreased [Fatal]

NARRATIVE: CASE EVENT DATE: 2020
